FAERS Safety Report 16300481 (Version 1)
Quarter: 2019Q2

REPORT INFORMATION
  Report Type: Spontaneous
  Country: IT (occurrence: IT)
  Receive Date: 20190510
  Receipt Date: 20190510
  Transmission Date: 20190711
  Serious: Yes (Hospitalization)
  Sender: FDA-Public Use
  Company Number: IT-PFIZER INC-2019197393

PATIENT
  Age: 91 Year
  Sex: Female

DRUGS (1)
  1. ZYVOXID [Suspect]
     Active Substance: LINEZOLID
     Indication: SEPSIS
     Dosage: 1200 MG, 1X/DAY
     Route: 040
     Dates: start: 20190405, end: 20190410

REACTIONS (1)
  - Posterior reversible encephalopathy syndrome [Recovering/Resolving]

NARRATIVE: CASE EVENT DATE: 20190409
